FAERS Safety Report 19896358 (Version 3)
Quarter: 2021Q4

REPORT INFORMATION
  Report Type: Spontaneous
  Country: US (occurrence: US)
  Receive Date: 20210929
  Receipt Date: 20211015
  Transmission Date: 20220303
  Serious: Yes (Other)
  Sender: FDA-Public Use
  Company Number: US-PFIZER INC-2015339530

PATIENT
  Age: 74 Year
  Sex: Female

DRUGS (36)
  1. LYRICA [Suspect]
     Active Substance: PREGABALIN
     Indication: Breast cancer female
     Dosage: 50 MG, 3X/DAY
     Route: 048
     Dates: start: 20150731, end: 20150827
  2. LYRICA [Suspect]
     Active Substance: PREGABALIN
     Indication: Peripheral sensory neuropathy
     Dosage: 100 MG, 3X/DAY (270 CAPSULES)
     Route: 048
     Dates: start: 20150827
  3. LYRICA [Suspect]
     Active Substance: PREGABALIN
     Indication: Toxic neuropathy
  4. LYRICA [Suspect]
     Active Substance: PREGABALIN
     Indication: Disease progression
  5. GABAPENTIN [Concomitant]
     Active Substance: GABAPENTIN
     Indication: Peripheral sensory neuropathy
     Dosage: 600 MG, UNK, (QLF)
     Route: 048
     Dates: start: 20140210, end: 20150508
  6. GABAPENTIN [Concomitant]
     Active Substance: GABAPENTIN
     Dosage: 300 MG, 3X/DAY
     Route: 048
     Dates: start: 20150508, end: 20150731
  7. POTASSIUM CHLORIDE [Concomitant]
     Active Substance: POTASSIUM CHLORIDE
     Indication: Supplementation therapy
     Dosage: 10 MEQ, 3X/DAY
     Route: 048
     Dates: start: 20120302
  8. PRAVASTATIN [Concomitant]
     Active Substance: PRAVASTATIN
     Indication: Hypercholesterolaemia
     Dosage: 20 MG, 1X/DAY
     Route: 048
     Dates: start: 20121109, end: 20141212
  9. PRAVASTATIN [Concomitant]
     Active Substance: PRAVASTATIN
     Indication: Hyperlipidaemia
     Dosage: 40 MG, 1X/DAY
     Route: 048
     Dates: start: 20141212, end: 20150102
  10. PRAVASTATIN [Concomitant]
     Active Substance: PRAVASTATIN
     Indication: Hypertriglyceridaemia
     Dosage: 20 MG, 1X/DAY
     Route: 048
     Dates: start: 20150102, end: 20150828
  11. PRAVASTATIN [Concomitant]
     Active Substance: PRAVASTATIN
     Dosage: 80 MG, 1X/DAY
     Route: 048
     Dates: start: 20150828
  12. TRAMADOL HCL [Concomitant]
     Active Substance: TRAMADOL HYDROCHLORIDE
     Indication: Back pain
     Dosage: 50 MG, EVERY 6 HOUR AS NEEDED, (Q 6 HR PRN)
     Route: 048
     Dates: start: 20140407
  13. FISH OIL [Concomitant]
     Active Substance: FISH OIL
     Indication: Supplementation therapy
     Dosage: 1200 MG, 1X/DAY
     Route: 048
     Dates: start: 20130220
  14. FISH OIL [Concomitant]
     Active Substance: FISH OIL
     Dosage: 1200 MG, 2X/DAY
     Route: 048
     Dates: start: 20151026
  15. ZOFRAN [Concomitant]
     Active Substance: ONDANSETRON HYDROCHLORIDE
     Indication: Prophylaxis of nausea and vomiting
     Dosage: 8 MG, 3X/DAY (^TID PRN^)
     Route: 048
     Dates: start: 20141209
  16. XANAX [Concomitant]
     Active Substance: ALPRAZOLAM
     Indication: Anxiety
     Dosage: 0.5 MG, AS NEEDED
     Route: 048
     Dates: start: 20090716
  17. ASPIRIN [Concomitant]
     Active Substance: ASPIRIN
     Indication: Cardiovascular event prophylaxis
     Dosage: 81 MG, 1X/DAY
     Route: 048
     Dates: start: 2013
  18. CALCIUM WITH ZINC AND VIT D3 [Concomitant]
     Indication: Supplementation therapy
     Dosage: UNK, 1X/DAY
     Route: 048
     Dates: start: 20090716
  19. LISINOPRIL [Concomitant]
     Active Substance: LISINOPRIL
     Indication: Hypertension
     Dosage: 10 MG, 1X/DAY
     Route: 048
     Dates: start: 20141219
  20. SENOKOT [Concomitant]
     Active Substance: SENNOSIDES
     Indication: Constipation
     Dosage: UNK, 2X/DAY, (OTC)
     Dates: start: 20140116
  21. HYDROCORTISONE [Concomitant]
     Active Substance: HYDROCORTISONE
     Indication: Rash maculo-papular
     Dosage: UNK,(1% TO AFFECTED AREA)
     Dates: start: 20150213
  22. FENOFIBRATE [Concomitant]
     Active Substance: FENOFIBRATE
     Indication: Hyperlipidaemia
     Dosage: 54 MG, 1X/DAY
     Route: 048
     Dates: start: 20150218, end: 20150420
  23. FENOFIBRATE [Concomitant]
     Active Substance: FENOFIBRATE
     Indication: Hypertriglyceridaemia
     Dosage: 108 MG, 1X/DAY
     Route: 048
     Dates: start: 20150420, end: 20150812
  24. FENOFIBRATE [Concomitant]
     Active Substance: FENOFIBRATE
     Dosage: 164 MG, 1X/DAY
     Route: 048
     Dates: start: 20150812
  25. METHYLPREDNISOLONE [Concomitant]
     Active Substance: METHYLPREDNISOLONE
     Indication: Rash maculo-papular
     Dosage: UNK, (AS DIRECTED)
     Route: 048
     Dates: start: 20150316, end: 20150318
  26. PREDNISONE [Concomitant]
     Active Substance: PREDNISONE
     Indication: Rash maculo-papular
     Dosage: 40 MG, 1X/DAY
     Route: 048
     Dates: start: 20150319, end: 20150329
  27. PRILOSEC [Concomitant]
     Active Substance: OMEPRAZOLE MAGNESIUM
     Indication: Dyspepsia
     Dosage: UNK, (OTC)
     Route: 048
     Dates: start: 20150319
  28. DOXYCYCLINE [Concomitant]
     Active Substance: DOXYCYCLINE
     Indication: Folliculitis
     Dosage: 100 MG, UNK, (X 10DAYS)
     Route: 048
     Dates: start: 20150409, end: 20150419
  29. MUGARD [Concomitant]
     Indication: Mucosal inflammation
     Dosage: UNK, 4-6 TIMES AS NEEDED
     Dates: start: 20150605
  30. COMPAZINE [Concomitant]
     Active Substance: PROCHLORPERAZINE MALEATE
     Indication: Nausea
     Dosage: 10 MG, PO Q 4-6 HR PRN
     Route: 048
     Dates: start: 20150605
  31. METFORMIN [Concomitant]
     Active Substance: METFORMIN HYDROCHLORIDE
     Indication: Diabetes mellitus
     Dosage: 500 MG, 2X/DAY
     Route: 048
     Dates: start: 20150702
  32. VITAMINS NOS [Concomitant]
     Active Substance: VITAMINS
     Indication: Supplementation therapy
     Dosage: UNK, 1X/DAY
     Route: 048
     Dates: start: 20090805
  33. MAGNESIUM CITRATE [Concomitant]
     Active Substance: MAGNESIUM CITRATE
     Indication: Constipation
     Dosage: UNK
     Dates: start: 20150904
  34. LEVAQUIN [Concomitant]
     Active Substance: LEVOFLOXACIN
     Indication: Upper respiratory tract infection
     Dosage: 500 MG, 1X/DAY
     Route: 048
     Dates: start: 20151125, end: 20151130
  35. NIACIN [Concomitant]
     Active Substance: NIACIN
     Indication: Hypercholesterolaemia
     Dosage: 500 MG, 1X/DAY (Q HS)
     Route: 048
     Dates: start: 20151221
  36. LOPERAMIDE HYDROCHLORIDE [Concomitant]
     Active Substance: LOPERAMIDE HYDROCHLORIDE
     Dosage: UNK

REACTIONS (3)
  - Breast cancer [Unknown]
  - Diarrhoea [Unknown]
  - Vomiting [Unknown]
